FAERS Safety Report 6729840-0 (Version None)
Quarter: 2010Q2

REPORT INFORMATION
  Report Type: 
  Country: None (occurrence: None)
  Receive Date: 20100513
  Receipt Date: 20100428
  Transmission Date: 20101027
  Serious: Yes (Death, Hospitalization)
  Sender: FDA-Public Use
  Company Number: 2007002530

PATIENT
  Age: 77 Year
  Sex: Male

DRUGS (6)
  1. ERLOTINIB HYDROCHLORIDE [Suspect]
     Indication: NON-SMALL CELL LUNG CANCER
     Dosage: ORAL
     Route: 048
     Dates: start: 20071120, end: 20071127
  2. ASPIRIN [Concomitant]
  3. RAMIPRIL [Concomitant]
  4. ATORVASTATIN CALCIUM [Concomitant]
  5. ISOTARD 9ISOSORBIDE  DINITRATE) [Concomitant]
  6. AMLODIPINE [Concomitant]

REACTIONS (10)
  - COLITIS [None]
  - DRY SKIN [None]
  - FAECAL INCONTINENCE [None]
  - GENERAL PHYSICAL HEALTH DETERIORATION [None]
  - MALIGNANT NEOPLASM PROGRESSION [None]
  - NASAL DISORDER [None]
  - NON-SMALL CELL LUNG CANCER [None]
  - RASH [None]
  - REFUSAL OF TREATMENT BY PATIENT [None]
  - SWELLING [None]
